FAERS Safety Report 17315112 (Version 2)
Quarter: 2020Q1

REPORT INFORMATION
  Report Type: Spontaneous
  Country: US (occurrence: US)
  Receive Date: 20200124
  Receipt Date: 20200309
  Transmission Date: 20200409
  Serious: Yes (Other)
  Sender: FDA-Public Use
  Company Number: US-UCBSA-2019037177

PATIENT
  Age: 23 Year
  Sex: Male
  Weight: 42.64 kg

DRUGS (6)
  1. TRILEPTAL [Concomitant]
     Active Substance: OXCARBAZEPINE
     Indication: SEIZURE
  2. BRIVIACT [Suspect]
     Active Substance: BRIVARACETAM
     Indication: EPILEPSY
     Dosage: 25 MILLIGRAM, 2X/DAY (BID)
     Dates: start: 20190808
  3. BRIVIACT [Suspect]
     Active Substance: BRIVARACETAM
     Indication: SEIZURE
     Dosage: DOSE INCREASED
     Dates: end: 20191202
  4. RISPERDAL [Concomitant]
     Active Substance: RISPERIDONE
     Indication: BEHAVIOURAL THERAPY
  5. BRIVIACT [Suspect]
     Active Substance: BRIVARACETAM
     Indication: EPILEPSY
     Dosage: 0.5 ML AM, 0.5 ML NOON AND 3 ML PM
     Dates: start: 20191203
  6. BRIVIACT [Suspect]
     Active Substance: BRIVARACETAM
     Indication: SEIZURE
     Dosage: 0.25 MILLILITER, 2X/DAY (BID)

REACTIONS (7)
  - Sedation [Unknown]
  - Scratch [Not Recovered/Not Resolved]
  - Wrong technique in product usage process [Unknown]
  - Bone marrow failure [Not Recovered/Not Resolved]
  - Somnolence [Unknown]
  - Fatigue [Recovering/Resolving]
  - Intentional product misuse [Unknown]

NARRATIVE: CASE EVENT DATE: 201910
